FAERS Safety Report 6371624-X (Version None)
Quarter: 2009Q3

REPORT INFORMATION
  Report Type: 
  Country: None (occurrence: None)
  Receive Date: 20090923
  Receipt Date: 20080905
  Transmission Date: 20100115
  Serious: Yes (Other)
  Sender: FDA-Public Use
  Company Number: US-ASTRAZENECA-2008UW10380

PATIENT
  Age: 41 Year
  Sex: Female
  Weight: 160.1 kg

DRUGS (6)
  1. SEROQUEL [Suspect]
     Indication: SCHIZOPHRENIA
     Dosage: 25 MG, 200 MG
     Route: 048
     Dates: start: 20040301, end: 20070401
  2. SEROQUEL [Suspect]
     Indication: DEPRESSION
     Dosage: 25 MG, 200 MG
     Route: 048
     Dates: start: 20040301, end: 20070401
  3. SEROQUEL [Suspect]
     Indication: BIPOLAR DISORDER
     Dosage: 25 MG, 200 MG
     Route: 048
     Dates: start: 20040301, end: 20070401
  4. ABILIFY [Concomitant]
     Dosage: 15 MG, 30 MG
     Dates: start: 20031101, end: 20060501
  5. ABILIFY [Concomitant]
     Dosage: 15 MG, 30 MG
     Dates: start: 20080101
  6. HALDOL [Concomitant]
     Dates: start: 20071101

REACTIONS (2)
  - CARDIAC FAILURE CONGESTIVE [None]
  - TYPE 2 DIABETES MELLITUS [None]
